FAERS Safety Report 12398262 (Version 1)
Quarter: 2016Q2

REPORT INFORMATION
  Report Type: Spontaneous
  Country: US (occurrence: US)
  Receive Date: 20160524
  Receipt Date: 20160524
  Transmission Date: 20160815
  Serious: Yes (Other)
  Sender: FDA-Public Use
  Company Number: US-PFIZER INC-2016264228

PATIENT
  Age: 61 Year
  Sex: Female
  Weight: 63.5 kg

DRUGS (4)
  1. REVATIO [Suspect]
     Active Substance: SILDENAFIL CITRATE
     Dosage: UNK
  2. LETAIRIS [Suspect]
     Active Substance: AMBRISENTAN
     Dosage: 10 MG, DAILY
     Dates: start: 20151117
  3. ORENITRAM [Suspect]
     Active Substance: TREPROSTINIL
     Indication: PULMONARY HYPERTENSION
     Dosage: 5 MG, 3X/DAY
     Route: 048
     Dates: start: 20150417, end: 201512
  4. RITUXAN [Suspect]
     Active Substance: RITUXIMAB
     Indication: SCLERODERMA
     Dosage: UNK
     Route: 042

REACTIONS (13)
  - Headache [Unknown]
  - Hypotension [Unknown]
  - Restless legs syndrome [Unknown]
  - Weight decreased [Unknown]
  - Nausea [Unknown]
  - Muscle spasms [Unknown]
  - Sinusitis [Unknown]
  - Decreased appetite [Unknown]
  - Anaemia [Unknown]
  - Malaise [Unknown]
  - Flushing [Unknown]
  - Nasal congestion [Unknown]
  - Abdominal distension [Unknown]

NARRATIVE: CASE EVENT DATE: 201510
